FAERS Safety Report 23695114 (Version 1)
Quarter: 2024Q2

REPORT INFORMATION
  Report Type: Spontaneous
  Country: US (occurrence: US)
  Receive Date: 20240402
  Receipt Date: 20240402
  Transmission Date: 20240716
  Serious: Yes (Hospitalization, Other)
  Sender: FDA-Public Use
  Company Number: US-NOVOPROD-1197481

PATIENT
  Age: 44 Year
  Sex: Female

DRUGS (1)
  1. TRESIBA [Suspect]
     Active Substance: INSULIN DEGLUDEC
     Indication: Type 1 diabetes mellitus
     Dosage: 15 IU, QD AT BEDTIME
     Route: 058

REACTIONS (9)
  - Vertigo [Not Recovered/Not Resolved]
  - Eye haemorrhage [Unknown]
  - Poisoning [Unknown]
  - Pain [Unknown]
  - Blood pressure fluctuation [Unknown]
  - Carpal tunnel syndrome [Recovered/Resolved]
  - Anxiety [Unknown]
  - Blood cholesterol abnormal [Unknown]
  - Dyspepsia [Recovered/Resolved]
